FAERS Safety Report 5708992-5 (Version None)
Quarter: 2008Q2

REPORT INFORMATION
  Report Type: 
  Country: None (occurrence: None)
  Receive Date: 20080416
  Receipt Date: 20080416
  Transmission Date: 20081010
  Serious: No
  Sender: FDA-Public Use
  Company Number: None

PATIENT
  Sex: Female

DRUGS (1)
  1. NADOLOL [Suspect]
     Dosage: 40MG DAILY

REACTIONS (3)
  - HEADACHE [None]
  - URTICARIA [None]
  - VISION BLURRED [None]
